FAERS Safety Report 9530067 (Version 2)
Quarter: 2013Q4

REPORT INFORMATION
  Report Type: Spontaneous
  Country: US (occurrence: US)
  Receive Date: 20130917
  Receipt Date: 20131011
  Transmission Date: 20140711
  Serious: Yes (Hospitalization)
  Sender: FDA-Public Use
  Company Number: US-B.I. PHARMACEUTICALS,INC./RIDGEFIELD-2013-BI-28641BP

PATIENT
  Age: 79 Year
  Sex: Male
  Weight: 97 kg

DRUGS (5)
  1. PRADAXA [Suspect]
     Indication: ATRIAL FIBRILLATION
     Dosage: 300 MG
     Route: 048
     Dates: end: 201301
  2. BENICAR [Concomitant]
     Indication: HYPERTENSION
     Dosage: STRENGTH: 20MG /12.5 MG; DAILY DOSE: 20MG /12.5 MG
     Route: 048
  3. TYLENOL [Concomitant]
     Indication: PAIN
     Route: 048
  4. GAPAPENTIN [Concomitant]
     Dosage: 600 MG
     Route: 048
  5. METOPROLOL TARTRATE [Concomitant]
     Indication: ATRIAL FIBRILLATION
     Dosage: 100 MG
     Route: 048

REACTIONS (1)
  - Gastrointestinal haemorrhage [Recovered/Resolved]
